FAERS Safety Report 23157931 (Version 1)
Quarter: 2023Q4

REPORT INFORMATION
  Report Type: Spontaneous
  Country: US (occurrence: US)
  Receive Date: 20231108
  Receipt Date: 20231108
  Transmission Date: 20240109
  Serious: No
  Sender: FDA-Public Use
  Company Number: US-SANDOZ-SDZ2023US015866

PATIENT
  Age: 75 Year
  Sex: Male

DRUGS (5)
  1. LAMPRENE [Suspect]
     Active Substance: CLOFAZIMINE
     Indication: Mycobacterium chelonae infection
     Dosage: 1000 MG, QD
     Route: 065
  2. AMIKACIN [Concomitant]
     Active Substance: AMIKACIN
     Indication: Drug hypersensitivity
     Dosage: 1500 MG, QW, 3 TIMES
     Route: 042
  3. AZITHROMYCIN [Concomitant]
     Active Substance: AZITHROMYCIN
     Indication: Drug hypersensitivity
     Dosage: 500 MG, QD
     Route: 048
  4. LINEZOLID [Concomitant]
     Active Substance: LINEZOLID
     Indication: Drug hypersensitivity
     Dosage: 600 MG, QD
     Route: 048
  5. VEDOLIZUMAB [Concomitant]
     Active Substance: VEDOLIZUMAB
     Indication: Product used for unknown indication
     Dosage: 300 MG, EVERY 8 WEEKS
     Route: 042

REACTIONS (2)
  - Dyspnoea [Unknown]
  - Cough [Unknown]
